FAERS Safety Report 15287765 (Version 1)
Quarter: 2018Q3

REPORT INFORMATION
  Report Type: Spontaneous
  Country: US (occurrence: US)
  Receive Date: 20180802
  Receipt Date: 20180802
  Transmission Date: 20181010
  Serious: Yes (Life-Threatening)
  Sender: FDA-Public Use
  Company Number: None

PATIENT
  Age: 59 Year
  Sex: Female
  Weight: 54.43 kg

DRUGS (2)
  1. HERCEPTIN [Suspect]
     Active Substance: TRASTUZUMAB
     Indication: BREAST CANCER
     Dates: start: 20160728, end: 20171010
  2. PERJETA [Suspect]
     Active Substance: PERTUZUMAB

REACTIONS (2)
  - Creutzfeldt-Jakob disease [None]
  - Breast cancer [None]

NARRATIVE: CASE EVENT DATE: 20160728
